FAERS Safety Report 14274050 (Version 1)
Quarter: 2017Q4

REPORT INFORMATION
  Report Type: Spontaneous
  Country: US (occurrence: US)
  Receive Date: 20171212
  Receipt Date: 20171212
  Transmission Date: 20180321
  Serious: Yes (Hospitalization, Other)
  Sender: FDA-Public Use
  Company Number: US-TEVA-2017-US-830071

PATIENT
  Age: 25 Year
  Sex: Female

DRUGS (12)
  1. CLONIDINE. [Suspect]
     Active Substance: CLONIDINE
     Indication: PROPHYLAXIS
     Route: 065
  2. CYMBALTA [Suspect]
     Active Substance: DULOXETINE HYDROCHLORIDE
     Indication: BIPOLAR DISORDER
     Route: 065
  3. ABILIFY [Suspect]
     Active Substance: ARIPIPRAZOLE
     Indication: BIPOLAR DISORDER
     Route: 065
  4. ATIVAN [Suspect]
     Active Substance: LORAZEPAM
     Indication: PRODUCT USED FOR UNKNOWN INDICATION
     Route: 065
  5. PHENERGAN [Suspect]
     Active Substance: PROMETHAZINE HYDROCHLORIDE
     Indication: VOMITING
     Route: 065
  6. REGLAN [Suspect]
     Active Substance: METOCLOPRAMIDE HYDROCHLORIDE
     Indication: VOMITING
     Route: 065
  7. KLONOPIN [Suspect]
     Active Substance: CLONAZEPAM
     Indication: BIPOLAR DISORDER
     Route: 065
  8. ABILIFY [Suspect]
     Active Substance: ARIPIPRAZOLE
     Route: 065
  9. ZOFRAN [Suspect]
     Active Substance: ONDANSETRON HYDROCHLORIDE
     Indication: VOMITING
     Route: 065
  10. MORPHINE [Suspect]
     Active Substance: MORPHINE
     Indication: MIGRAINE
     Route: 065
  11. FENTANYL. [Suspect]
     Active Substance: FENTANYL
     Indication: MIGRAINE
     Route: 065
  12. BENADRYL [Suspect]
     Active Substance: DIPHENHYDRAMINE HYDROCHLORIDE
     Indication: VOMITING
     Route: 065

REACTIONS (7)
  - Premature labour [Unknown]
  - Maternal exposure during pregnancy [Unknown]
  - Premature rupture of membranes [Unknown]
  - Vomiting [Unknown]
  - Prescribed overdose [Unknown]
  - Product use issue [Unknown]
  - Twin pregnancy [Unknown]

NARRATIVE: CASE EVENT DATE: 20090529
